FAERS Safety Report 21625851 (Version 44)
Quarter: 2025Q4

REPORT INFORMATION
  Report Type: Report from Study
  Country: MX (occurrence: MX)
  Receive Date: 20221122
  Receipt Date: 20251107
  Transmission Date: 20260118
  Serious: Yes (Life-Threatening, Hospitalization, Other)
  Sender: TAKEDA
  Company Number: MX-TAKEDA-2022TUS037870

PATIENT
  Age: 45 Year
  Sex: Female

DRUGS (9)
  1. ICATIBANT [Suspect]
     Active Substance: ICATIBANT ACETATE
     Indication: Hereditary angioedema
     Dosage: 1 DOSAGE FORM
  2. ICATIBANT [Suspect]
     Active Substance: ICATIBANT ACETATE
     Dosage: 30 MILLIGRAM/3 MILLILITER
  3. ICATIBANT [Suspect]
     Active Substance: ICATIBANT ACETATE
     Dosage: 1 DOSAGE FORM, Q2WEEKS
     Dates: start: 20220416
  4. ICATIBANT [Suspect]
     Active Substance: ICATIBANT ACETATE
     Dosage: 30 MILLIGRAM
  5. ICATIBANT [Suspect]
     Active Substance: ICATIBANT ACETATE
     Dosage: UNK
  6. ICATIBANT [Suspect]
     Active Substance: ICATIBANT ACETATE
     Dosage: 30 MILLIGRAM/3 MILLILITER
  7. TAKHZYRO [Suspect]
     Active Substance: LANADELUMAB-FLYO
     Indication: Hereditary angioedema
     Dosage: 300 MILLIGRAM/ 2 MILLILITER, Q2WEEKS
  8. TAKHZYRO [Suspect]
     Active Substance: LANADELUMAB-FLYO
  9. TAKHZYRO [Suspect]
     Active Substance: LANADELUMAB-FLYO

REACTIONS (44)
  - Hereditary angioedema [Recovering/Resolving]
  - Respiratory distress [Recovered/Resolved]
  - Syncope [Recovering/Resolving]
  - Gastrointestinal pain [Unknown]
  - Malaise [Recovered/Resolved]
  - Depressed mood [Recovered/Resolved]
  - Discomfort [Unknown]
  - Somnolence [Unknown]
  - Peripheral swelling [Unknown]
  - Insurance issue [Unknown]
  - Gastritis [Unknown]
  - Nightmare [Unknown]
  - Pruritus [Unknown]
  - Feeling cold [Unknown]
  - Stress [Recovering/Resolving]
  - Dysphonia [Recovered/Resolved]
  - Pain [Recovered/Resolved]
  - Fall [Recovering/Resolving]
  - Face injury [Recovering/Resolving]
  - Pain in extremity [Recovered/Resolved]
  - Musculoskeletal stiffness [Recovered/Resolved]
  - Puncture site reaction [Not Recovered/Not Resolved]
  - Puncture site bruise [Not Recovered/Not Resolved]
  - Abdominal pain upper [Recovered/Resolved]
  - Dehydration [Recovered/Resolved]
  - Abdominal pain lower [Recovered/Resolved]
  - Tachycardia [Not Recovered/Not Resolved]
  - Hyperhidrosis [Unknown]
  - Inflammation [Unknown]
  - Gastrointestinal disorder [Unknown]
  - Abdominal discomfort [Unknown]
  - Product use issue [Recovered/Resolved]
  - Intermenstrual bleeding [Unknown]
  - Pelvic fluid collection [Unknown]
  - Vomiting [Unknown]
  - Dyspepsia [Unknown]
  - Dizziness [Recovered/Resolved]
  - Rash [Unknown]
  - Urticaria [Unknown]
  - Musculoskeletal discomfort [Recovered/Resolved]
  - Bladder discomfort [Recovered/Resolved]
  - Inappropriate schedule of product administration [Not Recovered/Not Resolved]
  - Treatment noncompliance [Not Recovered/Not Resolved]
  - Product dose omission issue [Not Recovered/Not Resolved]

NARRATIVE: CASE EVENT DATE: 20221115
